FAERS Safety Report 7406162-6 (Version None)
Quarter: 2011Q2

REPORT INFORMATION
  Report Type: 
  Country: None (occurrence: None)
  Receive Date: 20110411
  Receipt Date: 20110406
  Transmission Date: 20111010
  Serious: Yes (Hospitalization, Other)
  Sender: FDA-Public Use
  Company Number: PA-ABBOTT-11P-125-0716951-00

PATIENT
  Age: 73 Year
  Sex: Female

DRUGS (4)
  1. BONDIVA [Concomitant]
     Indication: OSTEOPOROSIS
  2. DICLOPHENACO [Concomitant]
     Indication: MYALGIA
     Dosage: JUST IN CASE OF PAIN
  3. HUMIRA [Suspect]
     Indication: RHEUMATOID ARTHRITIS
     Route: 058
     Dates: start: 20100801, end: 20110316
  4. METHOTREXATE [Concomitant]
     Indication: RHEUMATOID ARTHRITIS
     Dosage: 0.8 C.C.DAILY
     Route: 058
     Dates: end: 20110321

REACTIONS (6)
  - MALAISE [None]
  - DIZZINESS [None]
  - INFLUENZA LIKE ILLNESS [None]
  - FATIGUE [None]
  - PYREXIA [None]
  - BACTERAEMIA [None]
